FAERS Safety Report 6822399-9 (Version None)
Quarter: 2010Q3

REPORT INFORMATION
  Report Type: 
  Country: None (occurrence: None)
  Receive Date: 20100708
  Receipt Date: 20100628
  Transmission Date: 20110219
  Serious: Yes (Other)
  Sender: FDA-Public Use
  Company Number: PHHY2010DE42904

PATIENT
  Sex: Female

DRUGS (1)
  1. EXFORGE [Suspect]
     Dosage: ONCE (160/10) DAILY
     Route: 048
     Dates: start: 20090101, end: 20100501

REACTIONS (1)
  - PERSONALITY CHANGE [None]
